FAERS Safety Report 22328237 (Version 3)
Quarter: 2023Q2

REPORT INFORMATION
  Report Type: Spontaneous
  Country: US (occurrence: None)
  Receive Date: 20230517
  Receipt Date: 20230614
  Transmission Date: 20230722
  Serious: Yes (Death, Hospitalization, Other)
  Sender: FDA-Public Use
  Company Number: 2023A111699

PATIENT
  Age: 77 Year
  Sex: Female
  Weight: 49.4 kg

DRUGS (2)
  1. LYNPARZA [Suspect]
     Active Substance: OLAPARIB
     Indication: Malignant peritoneal neoplasm
     Route: 048
     Dates: start: 20200801, end: 202110
  2. LYNPARZA [Suspect]
     Active Substance: OLAPARIB
     Indication: Malignant peritoneal neoplasm
     Route: 048
     Dates: start: 20220531, end: 20220808

REACTIONS (3)
  - Memory impairment [Fatal]
  - Anaemia [Fatal]
  - Underdose [Fatal]

NARRATIVE: CASE EVENT DATE: 20220808
